FAERS Safety Report 19943332 (Version 4)
Quarter: 2022Q3

REPORT INFORMATION
  Report Type: Report from Study
  Country: US (occurrence: US)
  Receive Date: 20211012
  Receipt Date: 20220627
  Transmission Date: 20221026
  Serious: Yes (Other)
  Sender: FDA-Public Use
  Company Number: NVSC2021US233226

PATIENT
  Sex: Male

DRUGS (1)
  1. ENTRESTO [Suspect]
     Active Substance: SACUBITRIL\VALSARTAN
     Indication: Cardiac failure chronic
     Dosage: 50 MG (49/51 MG), BID, (24.3 MG OF SACUBITRIL AND 25.7 MG OF VALSARTAN)
     Route: 065

REACTIONS (3)
  - Atrial fibrillation [Unknown]
  - Asthenia [Unknown]
  - Decreased activity [Unknown]
